FAERS Safety Report 10380476 (Version 1)
Quarter: 2014Q3

REPORT INFORMATION
  Report Type: Spontaneous
  Country: US (occurrence: US)
  Receive Date: 20140813
  Receipt Date: 20140813
  Transmission Date: 20150326
  Serious: Yes (Hospitalization, Other)
  Sender: FDA-Public Use
  Company Number: US-ELI_LILLY_AND_COMPANY-US201408002002

PATIENT
  Age: 47 Year
  Sex: Male

DRUGS (6)
  1. TETANUS VACCINE [Concomitant]
     Active Substance: CLOSTRIDIUM TETANI TOXOID ANTIGEN (FORMALDEHYDE INACTIVATED)
  2. VORICONAZOLE. [Concomitant]
     Active Substance: VORICONAZOLE
  3. CEFAZOLIN SODIUM. [Concomitant]
     Active Substance: CEFAZOLIN SODIUM
     Indication: WOUND INFECTION
     Route: 042
  4. GENTAMICIN [Concomitant]
     Active Substance: GENTAMICIN
  5. TOBRAMYCIN [Suspect]
     Active Substance: TOBRAMYCIN
     Indication: WOUND INFECTION
     Dosage: 2.40 G, OTHER
     Route: 050
  6. PENICILLIN [Concomitant]
     Active Substance: PENICILLIN

REACTIONS (3)
  - Lethargy [Recovered/Resolved]
  - Nausea [Recovered/Resolved]
  - Botulism [Recovered/Resolved]
